FAERS Safety Report 7691020-2 (Version None)
Quarter: 2011Q3

REPORT INFORMATION
  Report Type: 
  Country: None (occurrence: None)
  Receive Date: 20110812
  Receipt Date: 20110801
  Transmission Date: 20111222
  Serious: Yes (Death)
  Sender: FDA-Public Use
  Company Number: JP-2011-10761

PATIENT
  Age: 73 Year
  Sex: Female
  Weight: 52.3905 kg

DRUGS (20)
  1. ZANTAC [Concomitant]
  2. ALLOPURINOL [Concomitant]
  3. REVATIO (SLIDENAFIL CITRATE0 [Concomitant]
  4. HACHIMIJIO-GAN (HERBAL EXTRACT NOS) [Concomitant]
  5. ACARDI (PIMOBENDAN) [Concomitant]
  6. ALFAROL (ALFACALCIDOL) [Concomitant]
  7. PREDNISOLONE (PREDNISOLONE SODIUM PHOSPHATE) [Concomitant]
  8. LASIX [Concomitant]
  9. LANIRAPID (METILDIGOXIN) [Concomitant]
  10. DIART (AZOSEMIDE) [Concomitant]
  11. ALDACTONE [Concomitant]
  12. WARFARIN SODIUM [Concomitant]
  13. CETAPRIL (ALACEPRIL) [Concomitant]
  14. FOSAMAX [Concomitant]
  15. FERO-GRADUMET (FERROUS SULFATE) [Concomitant]
  16. KALGUT (DENOPAMINE) [Concomitant]
  17. SAMSCA [Suspect]
     Indication: CARDIAC FAILURE CHRONIC
     Dosage: 15 MG MILLIGRAM(S), QD, ORAL   7.5 MG MILLIGRAM(S), QD, ORAL
     Route: 048
     Dates: start: 20110429, end: 20110430
  18. SAMSCA [Suspect]
     Indication: CARDIAC FAILURE CHRONIC
     Dosage: 15 MG MILLIGRAM(S), QD, ORAL   7.5 MG MILLIGRAM(S), QD, ORAL
     Route: 048
     Dates: start: 20110428, end: 20110428
  19. MEXITIL [Concomitant]
  20. AMARYL [Concomitant]

REACTIONS (2)
  - CARDIAC FAILURE [None]
  - CONDITION AGGRAVATED [None]
